FAERS Safety Report 4405039-8 (Version None)
Quarter: 2004Q2

REPORT INFORMATION
  Report Type: 
  Country: None (occurrence: None)
  Receive Date: 20040621
  Receipt Date: 20040511
  Transmission Date: 20050107
  Serious: No
  Sender: FDA-Public Use
  Company Number: A-US2004-06188

PATIENT
  Sex: Female

DRUGS (27)
  1. TRACLEER [Suspect]
     Dosage: 62.5 MG, BID, ORAL; 125 MG, BID, ORAL
     Route: 048
     Dates: start: 20040201
  2. TRACLEER [Suspect]
     Dosage: 62.5 MG, BID, ORAL; 125 MG, BID, ORAL
     Route: 048
     Dates: start: 20040401
  3. MAGNESIUM OXIDE (MAGNESIUM OXIDE) [Concomitant]
  4. COUMADIN [Concomitant]
  5. POTASSIUM CHLORIDE [Concomitant]
  6. ATENOLOL [Concomitant]
  7. ZOCOR [Concomitant]
  8. FERROUS SULFATE TAB [Concomitant]
  9. LASIX [Concomitant]
  10. ACIPHEX [Concomitant]
  11. LISINOPRIL [Concomitant]
  12. OXYCONTIN [Concomitant]
  13. NEURONTIN [Concomitant]
  14. FOLIC ACID [Concomitant]
  15. PREMARIN [Concomitant]
  16. WELLBUTRIN [Concomitant]
  17. ZAROXOLYN [Concomitant]
  18. PERCOCET [Concomitant]
  19. LANTUS [Concomitant]
  20. CARAFATE [Concomitant]
  21. SIMETHICONE (DIMETICONE, ACTIVATED) [Concomitant]
  22. NITRO SPRAY (GLYCERYL TRINITRATE) [Concomitant]
  23. REGLAN [Concomitant]
  24. MULTIVITAMINS (ASCORBIC ACID, ERGOCALCIFEROL, FOLIC ACID, NICOTINAMIDE [Concomitant]
  25. ALLOPURINOL [Concomitant]
  26. INSULIN [Concomitant]
  27. ATARAX [Concomitant]

REACTIONS (2)
  - HEARING IMPAIRED [None]
  - TINNITUS [None]
